FAERS Safety Report 5336780-0 (Version None)
Quarter: 2007Q2

REPORT INFORMATION
  Report Type: 
  Country: None (occurrence: None)
  Receive Date: 20070529
  Receipt Date: 20070517
  Transmission Date: 20071010
  Serious: Yes (Hospitalization)
  Sender: FDA-Public Use
  Company Number: JP-ROCHE-494689

PATIENT
  Age: 8 Year
  Sex: Female
  Weight: 22 kg

DRUGS (4)
  1. TAMIFLU [Suspect]
     Dosage: FORM: DRY SYRUP.
     Route: 048
     Dates: start: 20070422, end: 20070422
  2. MUCODYNE [Concomitant]
     Route: 048
     Dates: start: 20070422, end: 20070422
  3. ASTOMIN [Concomitant]
     Route: 048
     Dates: start: 20070422, end: 20070422
  4. PERIACTIN [Concomitant]
     Route: 048
     Dates: start: 20070422, end: 20070422

REACTIONS (1)
  - ABNORMAL BEHAVIOUR [None]
